FAERS Safety Report 7576506-3 (Version None)
Quarter: 2011Q2

REPORT INFORMATION
  Report Type: 
  Country: None (occurrence: None)
  Receive Date: 20110628
  Receipt Date: 20110614
  Transmission Date: 20111010
  Serious: Yes (Hospitalization, Other)
  Sender: FDA-Public Use
  Company Number: US-BAYER-201022651NA

PATIENT
  Age: 25 Year
  Sex: Female
  Weight: 67.12 kg

DRUGS (17)
  1. AMOXICILLIN [Concomitant]
     Indication: HELICOBACTER INFECTION
     Dosage: 1000 MG, BID
     Route: 048
     Dates: start: 20080201
  2. LEXAPRO [Concomitant]
     Dosage: 10 MG, UNK
     Route: 048
     Dates: end: 20080807
  3. COUMADIN [Concomitant]
     Dosage: 10 MG, UNK
     Route: 048
  4. PERCOCET [Concomitant]
     Indication: PAIN
  5. PROTONIX [Concomitant]
     Dosage: 40 MG, QD
     Route: 048
  6. YAZ [Suspect]
     Indication: CONTRACEPTION
     Dosage: UNK UNK, UNK
     Route: 048
     Dates: start: 20071101, end: 20080201
  7. YASMIN [Suspect]
     Indication: CONTRACEPTION
     Dosage: UNK UNK, UNK
     Route: 048
     Dates: start: 20071101, end: 20080201
  8. VICODIN [Concomitant]
  9. CELEBREX [Concomitant]
     Indication: PLEURITIC PAIN
     Dosage: 200 MG, QD
  10. FLEXERIL [Concomitant]
     Dosage: 20 MG, PRN
  11. PROPOXYPHENE NAPSYLATE W/ ACETAMINOPHEN [Concomitant]
  12. NAPROXEN [Concomitant]
     Dosage: 500 MG, UNK
  13. COUMADIN [Concomitant]
     Dosage: 5 MG, QD
     Route: 048
  14. PREVACID [Concomitant]
     Indication: HELICOBACTER INFECTION
     Dosage: UNK
     Dates: start: 20080201
  15. BIAXIN [Concomitant]
     Indication: HELICOBACTER INFECTION
     Dosage: 500 MG, BID
     Route: 048
     Dates: start: 20080201
  16. ORPHENADRINE CITRATE [Concomitant]
     Dosage: 100 MG, UNK
  17. TRAZODONE HCL [Concomitant]
     Dosage: 150 MG, UNK

REACTIONS (1)
  - PULMONARY EMBOLISM [None]
